FAERS Safety Report 4336426-4 (Version None)
Quarter: 2004Q2

REPORT INFORMATION
  Report Type: 
  Country: None (occurrence: None)
  Receive Date: 20040407
  Receipt Date: 20040330
  Transmission Date: 20050107
  Serious: Yes (Hospitalization)
  Sender: FDA-Public Use
  Company Number: 2003184164US

PATIENT
  Age: 53 Year
  Sex: Female

DRUGS (7)
  1. CELEBREX [Suspect]
     Indication: SPINAL FRACTURE
     Dosage: ORAL
     Route: 048
     Dates: start: 20020920, end: 20031001
  2. TENORMIN [Concomitant]
  3. BENADRYL [Concomitant]
  4. VICODIN [Concomitant]
  5. ALBUTEROL [Concomitant]
  6. CAPOTEN [Concomitant]
  7. NITROLINGUAL [Concomitant]

REACTIONS (6)
  - ASTHENIA [None]
  - BLADDER DISORDER [None]
  - BLOOD URINE PRESENT [None]
  - DIABETES MELLITUS [None]
  - GASTRIC DISORDER [None]
  - WHEELCHAIR USER [None]
